FAERS Safety Report 5265848-2 (Version None)
Quarter: 2007Q1

REPORT INFORMATION
  Report Type: 
  Country: None (occurrence: None)
  Receive Date: 20070312
  Receipt Date: 20070312
  Transmission Date: 20070707
  Serious: Yes (Hospitalization, Other)
  Sender: FDA-Public Use
  Company Number: None

PATIENT
  Age: 81 Year
  Sex: Male
  Weight: 98.8842 kg

DRUGS (10)
  1. SERTRALINE [Suspect]
     Indication: DEPRESSION
     Dosage: 100MG DAILY PO
     Route: 048
     Dates: start: 20040101, end: 20070309
  2. METOPROLOL SUCCINATE [Suspect]
     Indication: MYOCARDIAL ISCHAEMIA
     Dosage: 25MG BID PO
     Route: 048
     Dates: start: 20061220, end: 20070125
  3. FLOMAX [Concomitant]
  4. DITROPAN XL [Concomitant]
  5. LISINOPRIL [Concomitant]
  6. PLAVIX [Concomitant]
  7. NITROGLYCERIN [Concomitant]
  8. ASPIRIN [Concomitant]
  9. LOVASTATIN [Concomitant]
  10. SYNTHROID [Concomitant]

REACTIONS (4)
  - BRADYCARDIA [None]
  - DIZZINESS POSTURAL [None]
  - DRUG INTERACTION [None]
  - HYPOTENSION [None]
